FAERS Safety Report 14718268 (Version 1)
Quarter: 2018Q2

REPORT INFORMATION
  Report Type: Spontaneous
  Country: US (occurrence: US)
  Receive Date: 20180404
  Receipt Date: 20180404
  Transmission Date: 20180711
  Serious: No
  Sender: FDA-Public Use
  Company Number: US-SA-2018SA074192

PATIENT
  Age: 83 Year
  Sex: Male

DRUGS (2)
  1. DUPIXENT [Suspect]
     Active Substance: DUPILUMAB
     Indication: URTICARIA
     Route: 058
     Dates: start: 20180307
  2. DUPIXENT [Suspect]
     Active Substance: DUPILUMAB
     Indication: RASH
     Route: 058
     Dates: start: 20180307

REACTIONS (5)
  - Hunger [Unknown]
  - Feeling abnormal [Unknown]
  - Arthralgia [Unknown]
  - Joint swelling [Unknown]
  - Dysgeusia [Unknown]
